FAERS Safety Report 17564773 (Version 3)
Quarter: 2020Q2

REPORT INFORMATION
  Report Type: Spontaneous
  Country: US (occurrence: US)
  Receive Date: 20200320
  Receipt Date: 20200413
  Transmission Date: 20200713
  Serious: No
  Sender: FDA-Public Use
  Company Number: US-GLAXOSMITHKLINE-US2020043634

PATIENT
  Sex: Male

DRUGS (2)
  1. FLUTICASONE PROPIONATE+SALMETEROL XINAFOATE INHALATION POWDER [Suspect]
     Active Substance: FLUTICASONE PROPIONATE\SALMETEROL XINAFOATE
     Indication: PRODUCT USED FOR UNKNOWN INDICATION
     Dosage: 1 PUFF(S), BID
     Route: 065
     Dates: start: 20200309
  2. ALBUTEROL SULFATE INHALATION POWDER [Concomitant]
     Active Substance: ALBUTEROL SULFATE
     Indication: PRODUCT USED FOR UNKNOWN INDICATION
     Dosage: UNK
     Route: 065

REACTIONS (5)
  - Oropharyngeal pain [Unknown]
  - Aphonia [Unknown]
  - Dyspnoea [Not Recovered/Not Resolved]
  - Candida infection [Unknown]
  - Tongue disorder [Not Recovered/Not Resolved]
